FAERS Safety Report 10291149 (Version 2)
Quarter: 2014Q3

REPORT INFORMATION
  Report Type: Spontaneous
  Country: US (occurrence: US)
  Receive Date: 20140710
  Receipt Date: 20140710
  Transmission Date: 20150326
  Serious: Yes (Other)
  Sender: FDA-Public Use
  Company Number: US-ELI_LILLY_AND_COMPANY-US201403009138

PATIENT
  Age: 29 Year
  Sex: Male
  Weight: 92.97 kg

DRUGS (1)
  1. STRATTERA [Suspect]
     Active Substance: ATOMOXETINE HYDROCHLORIDE
     Indication: ATTENTION DEFICIT/HYPERACTIVITY DISORDER
     Dosage: 40 MG, QD
     Route: 065
     Dates: start: 20140319

REACTIONS (7)
  - Exertional headache [Unknown]
  - Fatigue [Recovered/Resolved]
  - Aneurysm [Unknown]
  - Headache [Recovered/Resolved]
  - Malaise [Unknown]
  - Lethargy [Recovered/Resolved]
  - Paraesthesia [Recovered/Resolved]

NARRATIVE: CASE EVENT DATE: 201403
